FAERS Safety Report 22362338 (Version 1)
Quarter: 2023Q2

REPORT INFORMATION
  Report Type: Spontaneous
  Country: US (occurrence: US)
  Receive Date: 20230524
  Receipt Date: 20230524
  Transmission Date: 20230721
  Serious: Yes (Other)
  Sender: FDA-Public Use
  Company Number: US-PFIZER INC-202300198010

PATIENT
  Sex: Male

DRUGS (1)
  1. PAXLOVID [Suspect]
     Active Substance: NIRMATRELVIR\RITONAVIR
     Indication: COVID-19 treatment
     Dosage: UNK

REACTIONS (7)
  - Diarrhoea [Unknown]
  - Thinking abnormal [Unknown]
  - Neurosis [Unknown]
  - Dyspepsia [Unknown]
  - Anxiety [Unknown]
  - Abdominal discomfort [Unknown]
  - Hernia [Unknown]
